FAERS Safety Report 15515469 (Version 3)
Quarter: 2018Q4

REPORT INFORMATION
  Report Type: Spontaneous
  Country: DE (occurrence: DE)
  Receive Date: 20181017
  Receipt Date: 20181128
  Transmission Date: 20190205
  Serious: Yes (Hospitalization, Other)
  Sender: FDA-Public Use
  Company Number: DE-EMD SERONO-9047005

PATIENT
  Age: 26 Year
  Sex: Male

DRUGS (2)
  1. REBIF [Suspect]
     Active Substance: INTERFERON BETA-1A
     Indication: MULTIPLE SCLEROSIS
     Route: 058
  2. REBIF [Suspect]
     Active Substance: INTERFERON BETA-1A
     Dosage: 22 (UNSPECIFIED UNITS)
     Dates: start: 201708, end: 20180813

REACTIONS (3)
  - Influenza like illness [Unknown]
  - Agranulocytosis [Not Recovered/Not Resolved]
  - Sepsis [Unknown]

NARRATIVE: CASE EVENT DATE: 201808
